FAERS Safety Report 6644158-2 (Version None)
Quarter: 2010Q1

REPORT INFORMATION
  Report Type: 
  Country: None (occurrence: None)
  Receive Date: 20100322
  Receipt Date: 20100317
  Transmission Date: 20100710
  Serious: Yes (Death, Other)
  Sender: FDA-Public Use
  Company Number: PHHY2009GB46775

PATIENT
  Sex: Male

DRUGS (4)
  1. CLOZARIL [Suspect]
     Dosage: UNK
     Dates: start: 20070502
  2. METHADONE HCL [Suspect]
  3. SUBUTEX [Concomitant]
  4. SERTRALINE [Concomitant]
     Indication: DEPRESSION
     Dosage: 100 MG, QD

REACTIONS (3)
  - ACCIDENTAL OVERDOSE [None]
  - SCHIZOPHRENIA, RESIDUAL TYPE [None]
  - VOMITING [None]
